FAERS Safety Report 19320848 (Version 1)
Quarter: 2021Q2

REPORT INFORMATION
  Report Type: Spontaneous
  Country: US (occurrence: US)
  Receive Date: 20210527
  Receipt Date: 20210527
  Transmission Date: 20210717
  Serious: Yes (Life-Threatening, Hospitalization)
  Sender: FDA-Public Use
  Company Number: US-TEVA-2021-US-1914973

PATIENT
  Age: 50 Year
  Sex: Male

DRUGS (4)
  1. EPINEPHRINE. [Suspect]
     Active Substance: EPINEPHRINE
     Indication: SHOCK
     Route: 050
  2. ALBUMIN [Suspect]
     Active Substance: ALBUMIN HUMAN
     Indication: SHOCK
     Dosage: BOLUSES
     Route: 065
  3. NOREPINEPHRINE. [Suspect]
     Active Substance: NOREPINEPHRINE
     Indication: SHOCK
     Route: 050
  4. VASOPRESSIN. [Suspect]
     Active Substance: VASOPRESSIN
     Indication: SHOCK
     Route: 050

REACTIONS (2)
  - Acute respiratory failure [Recovering/Resolving]
  - Drug ineffective [Unknown]
